FAERS Safety Report 25774773 (Version 1)
Quarter: 2025Q3

REPORT INFORMATION
  Report Type: Spontaneous
  Country: EU (occurrence: EU)
  Receive Date: 20250908
  Receipt Date: 20250908
  Transmission Date: 20251021
  Serious: Yes (Other)
  Sender: MYLAN
  Company Number: None

PATIENT
  Age: 58 Year
  Sex: Male
  Weight: 78 kg

DRUGS (8)
  1. METHOTREXATE [Suspect]
     Active Substance: METHOTREXATE
     Indication: Product used for unknown indication
     Dosage: 15 MILLIGRAM, QW (15 MG PER WEEK (METHOTREXATE))
     Dates: start: 20240320, end: 20240429
  2. METHOTREXATE [Suspect]
     Active Substance: METHOTREXATE
     Dosage: 15 MILLIGRAM, QW (15 MG PER WEEK (METHOTREXATE))
     Route: 058
     Dates: start: 20240320, end: 20240429
  3. METHOTREXATE [Suspect]
     Active Substance: METHOTREXATE
     Dosage: 15 MILLIGRAM, QW (15 MG PER WEEK (METHOTREXATE))
     Route: 058
     Dates: start: 20240320, end: 20240429
  4. METHOTREXATE [Suspect]
     Active Substance: METHOTREXATE
     Dosage: 15 MILLIGRAM, QW (15 MG PER WEEK (METHOTREXATE))
     Dates: start: 20240320, end: 20240429
  5. CYCLOSPORINE [Suspect]
     Active Substance: CYCLOSPORINE
     Indication: Product used for unknown indication
     Dosage: 150 MILLIGRAM, BID (150 MG TWICE A DAY (CYCLOSPORINE))
     Dates: start: 20240110, end: 20240129
  6. CYCLOSPORINE [Suspect]
     Active Substance: CYCLOSPORINE
     Dosage: 150 MILLIGRAM, BID (150 MG TWICE A DAY (CYCLOSPORINE))
     Route: 048
     Dates: start: 20240110, end: 20240129
  7. CYCLOSPORINE [Suspect]
     Active Substance: CYCLOSPORINE
     Dosage: 150 MILLIGRAM, BID (150 MG TWICE A DAY (CYCLOSPORINE))
     Route: 048
     Dates: start: 20240110, end: 20240129
  8. CYCLOSPORINE [Suspect]
     Active Substance: CYCLOSPORINE
     Dosage: 150 MILLIGRAM, BID (150 MG TWICE A DAY (CYCLOSPORINE))
     Dates: start: 20240110, end: 20240129

REACTIONS (2)
  - Hypertensive crisis [Recovered/Resolved]
  - Irritable bowel syndrome [Recovered/Resolved]

NARRATIVE: CASE EVENT DATE: 20240120
